FAERS Safety Report 5454201-4 (Version None)
Quarter: 2007Q3

REPORT INFORMATION
  Report Type: 
  Country: None (occurrence: None)
  Receive Date: 20070917
  Receipt Date: 20070330
  Transmission Date: 20080115
  Serious: Yes (Other)
  Sender: FDA-Public Use
  Company Number: US-ASTRAZENECA-2006UW11199

PATIENT
  Sex: Female
  Weight: 118.2 kg

DRUGS (8)
  1. SEROQUEL [Suspect]
     Indication: BIPOLAR DISORDER
     Route: 048
  2. SEROQUEL [Suspect]
     Indication: ANXIETY
     Route: 048
  3. SEROQUEL [Suspect]
     Indication: DEPRESSION
     Route: 048
  4. ZYPREXA [Concomitant]
  5. GEODON [Concomitant]
  6. HALDOL [Concomitant]
  7. RISPERDAL [Concomitant]
  8. STELAZINE [Concomitant]

REACTIONS (1)
  - DIABETIC COMA [None]
